FAERS Safety Report 6374698-5 (Version None)
Quarter: 2009Q3

REPORT INFORMATION
  Report Type: 
  Country: None (occurrence: None)
  Receive Date: 20090924
  Receipt Date: 20090918
  Transmission Date: 20100115
  Serious: Yes (Other)
  Sender: FDA-Public Use
  Company Number: FR-BRISTOL-MYERS SQUIBB COMPANY-14784920

PATIENT
  Age: 4 Decade
  Sex: Female

DRUGS (4)
  1. ABILIFY [Suspect]
     Indication: PSYCHOTIC DISORDER
  2. TERCIAN [Suspect]
     Indication: PSYCHOTIC DISORDER
  3. ZYPREXA [Concomitant]
  4. SOLIAN [Concomitant]

REACTIONS (1)
  - CUSHING'S SYNDROME [None]
